FAERS Safety Report 8800173 (Version 2)
Quarter: 2015Q1

REPORT INFORMATION
  Report Type: Report from Study
  Country: US (occurrence: US)
  Receive Date: 20120921
  Receipt Date: 20150312
  Transmission Date: 20150721
  Serious: Yes (Death, Hospitalization)
  Sender: FDA-Public Use
  Company Number: US-ROCHE-1104416

PATIENT
  Age: 58 Year
  Sex: Female
  Weight: 106.6 kg

DRUGS (21)
  1. HEPARIN [Suspect]
     Active Substance: HEPARIN SODIUM
     Indication: PRODUCT USED FOR UNKNOWN INDICATION
     Route: 042
  2. ASPIRIN. [Concomitant]
     Active Substance: ASPIRIN
     Route: 048
  3. COREG [Concomitant]
     Active Substance: CARVEDILOL
     Route: 048
  4. MORPHINE [Concomitant]
     Active Substance: MORPHINE
     Route: 065
  5. DEXAMETHASONE. [Concomitant]
     Active Substance: DEXAMETHASONE
     Indication: OEDEMA
     Route: 048
  6. POTASSIUM CHLORIDE. [Concomitant]
     Active Substance: POTASSIUM CHLORIDE
     Route: 048
  7. TRIAMTERENE/HYDROCHLOROTHIAZIDE [Concomitant]
     Active Substance: HYDROCHLOROTHIAZIDE\TRIAMTERENE
     Dosage: DOSE: 50/75 MG
     Route: 065
  8. ATROPINE [Concomitant]
     Active Substance: ATROPINE
     Route: 042
  9. LORAZEPAM. [Concomitant]
     Active Substance: LORAZEPAM
     Route: 048
  10. ZOFRAN [Concomitant]
     Active Substance: ONDANSETRON HYDROCHLORIDE
     Route: 048
  11. KAYEXALATE [Concomitant]
     Active Substance: SODIUM POLYSTYRENE SULFONATE
  12. CELEBREX [Concomitant]
     Active Substance: CELECOXIB
     Route: 048
  13. AVASTIN [Suspect]
     Active Substance: BEVACIZUMAB
     Indication: BRAIN NEOPLASM MALIGNANT
     Route: 042
     Dates: start: 20070928
  14. COLACE [Concomitant]
     Active Substance: DOCUSATE SODIUM
     Route: 048
  15. NITROQUICK [Concomitant]
     Active Substance: NITROGLYCERIN
     Route: 060
  16. PROTONIX (UNITED STATES) [Concomitant]
     Route: 048
  17. ALTACE [Concomitant]
     Active Substance: RAMIPRIL
     Route: 048
  18. IRINOTECAN [Concomitant]
     Active Substance: IRINOTECAN
     Route: 042
  19. MICONAZOLE [Concomitant]
     Active Substance: MICONAZOLE
     Indication: FUNGAL SKIN INFECTION
     Route: 061
  20. LOVENOX [Concomitant]
     Active Substance: ENOXAPARIN SODIUM
     Route: 065
  21. WARFARIN [Concomitant]
     Active Substance: WARFARIN

REACTIONS (15)
  - Dysarthria [Unknown]
  - Acute prerenal failure [Unknown]
  - Off label use [Unknown]
  - Peripheral swelling [Recovering/Resolving]
  - Venous thrombosis [Unknown]
  - Hyperkalaemia [Recovered/Resolved]
  - Rectal haemorrhage [Recovered/Resolved]
  - Diabetes mellitus inadequate control [Recovered/Resolved]
  - Death [Fatal]
  - Thrombophlebitis superficial [Unknown]
  - Sensory loss [Unknown]
  - Haemoglobin decreased [Recovered/Resolved]
  - Deep vein thrombosis [Unknown]
  - Mental status changes [Unknown]
  - Muscular weakness [Unknown]

NARRATIVE: CASE EVENT DATE: 200710
